FAERS Safety Report 13556114 (Version 1)
Quarter: 2017Q2

REPORT INFORMATION
  Report Type: Report from Study
  Country: US (occurrence: US)
  Receive Date: 20170517
  Receipt Date: 20170517
  Transmission Date: 20170830
  Serious: No
  Sender: FDA-Public Use
  Company Number: US-ACADIA PHARMACEUTICALS INC.-ACA-2017-002444

PATIENT
  Age: 73 Year
  Sex: Female

DRUGS (7)
  1. NUPLAZID [Suspect]
     Active Substance: PIMAVANSERIN TARTRATE
     Indication: PRODUCT USED FOR UNKNOWN INDICATION
     Dosage: 34 MG, QD
     Route: 048
     Dates: start: 20161118
  2. LATANOPROST. [Concomitant]
     Active Substance: LATANOPROST
     Indication: PRODUCT USED FOR UNKNOWN INDICATION
  3. CARBIDOPA/LEVODOPA [Concomitant]
     Active Substance: CARBIDOPA\LEVODOPA
     Indication: PRODUCT USED FOR UNKNOWN INDICATION
  4. PROCTOZONE HC [Concomitant]
     Active Substance: HYDROCORTISONE
     Indication: PRODUCT USED FOR UNKNOWN INDICATION
  5. SMZ-TMP [Concomitant]
     Active Substance: SULFAMETHOXAZOLE\TRIMETHOPRIM
     Indication: PRODUCT USED FOR UNKNOWN INDICATION
  6. QUETIAPINE. [Concomitant]
     Active Substance: QUETIAPINE
     Indication: PRODUCT USED FOR UNKNOWN INDICATION
  7. LORAZEPAM. [Concomitant]
     Active Substance: LORAZEPAM
     Indication: PRODUCT USED FOR UNKNOWN INDICATION

REACTIONS (2)
  - Tremor [Not Recovered/Not Resolved]
  - Hallucination [Not Recovered/Not Resolved]

NARRATIVE: CASE EVENT DATE: 201701
